FAERS Safety Report 9607324 (Version 1)
Quarter: 2013Q4

REPORT INFORMATION
  Report Type: Spontaneous
  Country: US (occurrence: None)
  Receive Date: 20131007
  Receipt Date: 20131007
  Transmission Date: 20140711
  Serious: No
  Sender: FDA-Public Use
  Company Number: None

PATIENT
  Age: 76 Year
  Sex: Female

DRUGS (4)
  1. AZITHROMYCIN 250 MG [Suspect]
     Indication: PHARYNGITIS
     Dosage: 2 PILLS THE FIRST DAY AND THEN ONE FOR 4 DAYS, ONCE A DAY.
     Route: 048
     Dates: start: 20130912, end: 20130912
  2. AZITHROMYCIN 250 MG [Suspect]
     Indication: BACTERIAL INFECTION
     Dosage: 2 PILLS THE FIRST DAY AND THEN ONE FOR 4 DAYS, ONCE A DAY.
     Route: 048
     Dates: start: 20130912, end: 20130912
  3. SYNTHROID 50 MCG [Concomitant]
  4. ONE A DAY VITAMEN [Concomitant]

REACTIONS (4)
  - Swelling face [None]
  - Erythema [None]
  - Skin burning sensation [None]
  - Blood pressure increased [None]
